FAERS Safety Report 8886002 (Version 2)
Quarter: 2013Q3

REPORT INFORMATION
  Report Type: Spontaneous
  Country: US (occurrence: US)
  Receive Date: 20121105
  Receipt Date: 20130719
  Transmission Date: 20140515
  Serious: No
  Sender: FDA-Public Use
  Company Number: US-PFIZER INC-2012274894

PATIENT
  Age: 74 Year
  Sex: Male
  Weight: 99.77 kg

DRUGS (2)
  1. LYRICA [Suspect]
     Indication: POST HERPETIC NEURALGIA
     Dosage: 150 MG, 2X/DAY
     Dates: start: 201210
  2. IBUPROFEN [Concomitant]
     Indication: PAIN
     Dosage: 400 MG, AS NEEDED

REACTIONS (2)
  - Drug effect incomplete [Unknown]
  - Weight increased [Unknown]
